FAERS Safety Report 7756834-9 (Version None)
Quarter: 2011Q3

REPORT INFORMATION
  Report Type: 
  Country: None (occurrence: None)
  Receive Date: 20110916
  Receipt Date: 20110908
  Transmission Date: 20111222
  Serious: Yes (Other)
  Sender: FDA-Public Use
  Company Number: US-JNJFOC-20100908989

PATIENT
  Sex: Female

DRUGS (14)
  1. ABILIFY [Suspect]
     Indication: ILL-DEFINED DISORDER
     Route: 065
  2. MONTELUKAST SODIUM [Suspect]
     Indication: ILL-DEFINED DISORDER
     Route: 048
  3. NEURONTIN [Interacting]
     Indication: ILL-DEFINED DISORDER
     Route: 065
  4. NEXIUM [Suspect]
     Indication: ILL-DEFINED DISORDER
     Route: 065
  5. BUSPAR [Suspect]
     Indication: ILL-DEFINED DISORDER
     Route: 065
  6. ATROVENT [Suspect]
     Indication: ILL-DEFINED DISORDER
     Route: 065
  7. LITHIUM CARBONATE [Suspect]
     Route: 065
  8. TRAMADOL HCL [Suspect]
     Indication: ILL-DEFINED DISORDER
     Route: 065
  9. FLEXERIL [Suspect]
     Indication: ILL-DEFINED DISORDER
     Route: 048
  10. FLOVENT [Suspect]
     Indication: ILL-DEFINED DISORDER
     Route: 065
  11. LEVOTHROID [Suspect]
     Indication: ILL-DEFINED DISORDER
     Route: 065
  12. EFFEXOR XR [Suspect]
     Indication: ILL-DEFINED DISORDER
     Route: 065
  13. SEROQUEL [Suspect]
     Indication: ILL-DEFINED DISORDER
     Route: 065
  14. LITHIUM CARBONATE [Suspect]
     Indication: PRODUCT USED FOR UNKNOWN INDICATION
     Route: 065

REACTIONS (3)
  - HYPOTHYROIDISM [None]
  - DRUG INTERACTION [None]
  - DRUG INEFFECTIVE [None]
